FAERS Safety Report 9626501 (Version 1)
Quarter: 2013Q4

REPORT INFORMATION
  Report Type: Report from Study
  Country: DE (occurrence: DE)
  Receive Date: 20131016
  Receipt Date: 20131016
  Transmission Date: 20140711
  Serious: Yes (Other)
  Sender: FDA-Public Use
  Company Number: DE-SA-2013SA100388

PATIENT
  Age: 74 Year
  Sex: Male
  Weight: 86 kg

DRUGS (7)
  1. MULTAQ [Suspect]
     Indication: ATRIAL FIBRILLATION
     Route: 048
     Dates: start: 20120919, end: 201303
  2. BETA BLOCKING AGENTS [Concomitant]
     Dates: start: 200910
  3. PROTEIN C (COAGULATION INHIBITOR)/FACTOR X (STUART PROWER FACTOR)/FACTOR VII (PROCONVERTIN)/FACTOR I [Concomitant]
     Indication: ANTICOAGULANT THERAPY
     Route: 048
     Dates: start: 20120623
  4. METOPROLOL [Concomitant]
  5. CANDESARTAN [Concomitant]
  6. LEVOTHYROXINE [Concomitant]
  7. VIT K ANTAGONISTS [Concomitant]
     Dates: start: 20120917

REACTIONS (1)
  - Atrial fibrillation [Unknown]
